FAERS Safety Report 6387742-6 (Version None)
Quarter: 2009Q4

REPORT INFORMATION
  Report Type: 
  Country: None (occurrence: None)
  Receive Date: 20091005
  Receipt Date: 20090930
  Transmission Date: 20100525
  Serious: Yes (Hospitalization, Other)
  Sender: FDA-Public Use
  Company Number: US-BRISTOL-MYERS SQUIBB COMPANY-14697981

PATIENT
  Age: 58 Year
  Sex: Male
  Weight: 102 kg

DRUGS (8)
  1. IXABEPILONE [Suspect]
     Indication: NON-SMALL CELL LUNG CANCER
     Dosage: CYCLE:2
     Dates: start: 20090602, end: 20090623
  2. CARBOPLATIN [Suspect]
     Indication: NON-SMALL CELL LUNG CANCER
     Dosage: CYCLE:2
     Dates: start: 20090602, end: 20090623
  3. BEVACIZUMAB [Suspect]
     Indication: NON-SMALL CELL LUNG CANCER
     Dosage: CYCLE:2
     Dates: start: 20090602, end: 20090623
  4. NABUMETONE [Concomitant]
     Route: 048
     Dates: start: 20090201
  5. FOLIC ACID [Concomitant]
     Route: 048
     Dates: start: 20090201
  6. VITAMIN B-12 [Concomitant]
     Route: 048
     Dates: start: 20090201
  7. LASIX [Concomitant]
     Route: 048
     Dates: start: 20090623
  8. TYLENOL (CAPLET) [Concomitant]
     Dosage: EVERY 4-6 HRS
     Dates: start: 20000101

REACTIONS (3)
  - ABDOMINAL PAIN [None]
  - LARGE INTESTINE PERFORATION [None]
  - WOUND COMPLICATION [None]
